FAERS Safety Report 6074269-4 (Version None)
Quarter: 2009Q1

REPORT INFORMATION
  Report Type: 
  Country: None (occurrence: None)
  Receive Date: 20090211
  Receipt Date: 20090205
  Transmission Date: 20090719
  Serious: Yes (Life-Threatening)
  Sender: FDA-Public Use
  Company Number: JP-ASTRAZENECA-2009AP00941

PATIENT
  Age: 23068 Day
  Sex: Male

DRUGS (9)
  1. MEROPEN [Suspect]
     Indication: PANCREATITIS ACUTE
     Dosage: TREATMENT FOR CHOLECYSTITIS (RECOVERED)
     Route: 041
     Dates: start: 20081227, end: 20090105
  2. MEROPEN [Suspect]
     Route: 041
     Dates: start: 20090122, end: 20090122
  3. RELENZA [Suspect]
     Indication: INFLUENZA
     Route: 055
     Dates: start: 20090120
  4. TAZ/PIPC [Concomitant]
     Route: 042
     Dates: start: 20090113, end: 20090121
  5. LACTULOSE [Concomitant]
     Indication: CONSTIPATION
     Route: 048
     Dates: start: 20051101
  6. OMEPRAL [Concomitant]
     Indication: VARICES OESOPHAGEAL
     Route: 048
     Dates: start: 20061101
  7. URSODESOXYCHOLIC ACID [Concomitant]
     Indication: HEPATIC CIRRHOSIS
     Route: 048
     Dates: start: 20061101
  8. LASIX [Concomitant]
     Indication: HEPATIC CIRRHOSIS
     Route: 048
     Dates: start: 20070511
  9. ALDACTONE [Concomitant]
     Indication: HEPATIC CIRRHOSIS
     Route: 048
     Dates: start: 20070511

REACTIONS (1)
  - ANAPHYLACTIC SHOCK [None]
